FAERS Safety Report 24063602 (Version 2)
Quarter: 2024Q3

REPORT INFORMATION
  Report Type: Spontaneous
  Country: US (occurrence: US)
  Receive Date: 20240709
  Receipt Date: 20240815
  Transmission Date: 20241016
  Serious: No
  Sender: MERCK
  Company Number: US-009507513-2406USA007505

PATIENT
  Age: 35 Year
  Sex: Male

DRUGS (2)
  1. KEYTRUDA [Suspect]
     Active Substance: PEMBROLIZUMAB
     Dosage: EVERY 21 DAYS (Q3W).
  2. KEYTRUDA [Suspect]
     Active Substance: PEMBROLIZUMAB
     Dosage: EVERY 21 DAYS (Q3W).
     Dates: start: 20240506, end: 20240506

REACTIONS (1)
  - Inappropriate schedule of product administration [Unknown]

NARRATIVE: CASE EVENT DATE: 20240527
